FAERS Safety Report 9322984 (Version 2)
Quarter: 2013Q4

REPORT INFORMATION
  Report Type: Spontaneous
  Country: US (occurrence: US)
  Receive Date: 20130603
  Receipt Date: 20131105
  Transmission Date: 20140711
  Serious: Yes (Hospitalization)
  Sender: FDA-Public Use
  Company Number: US-B.I. PHARMACEUTICALS,INC./RIDGEFIELD-2013-BI-14852BP

PATIENT
  Age: 65 Year
  Sex: Male
  Weight: 83.91 kg

DRUGS (9)
  1. PRADAXA [Suspect]
     Indication: THROMBOSIS PROPHYLAXIS
     Dates: start: 20121204, end: 20121207
  2. NARCO [Concomitant]
     Indication: PAIN
     Route: 048
  3. COREG [Concomitant]
     Dosage: 12.5 MG
     Route: 048
  4. PLAVIX [Concomitant]
     Dosage: 75 MG
  5. ASPIRIN [Concomitant]
     Dosage: 81 MG
  6. LISINOPRIL [Concomitant]
     Dosage: 5 MG
  7. KEFLEX [Concomitant]
     Dosage: 1000 MG
  8. COUMADIN [Concomitant]
     Indication: ANTICOAGULANT THERAPY
     Dosage: 5 MG
  9. COUMADIN [Concomitant]
     Indication: THROMBOSIS PROPHYLAXIS

REACTIONS (5)
  - Gastrointestinal haemorrhage [Unknown]
  - Haemorrhagic anaemia [Unknown]
  - Renal failure acute [Recovered/Resolved]
  - Electrolyte imbalance [Recovered/Resolved]
  - Haematuria [Recovered/Resolved]
